FAERS Safety Report 19923977 (Version 1)
Quarter: 2021Q4

REPORT INFORMATION
  Report Type: Spontaneous
  Country: IN (occurrence: IN)
  Receive Date: 20211006
  Receipt Date: 20211006
  Transmission Date: 20220303
  Serious: Yes (Disabling, Other)
  Sender: FDA-Public Use
  Company Number: IN-LUPIN PHARMACEUTICALS INC.-2021-18801

PATIENT
  Age: 21 Year
  Sex: Female

DRUGS (9)
  1. RIFAMPIN [Suspect]
     Active Substance: RIFAMPIN
     Indication: Meningitis tuberculous
     Dosage: UNK
     Route: 065
     Dates: start: 201508
  2. PYRAZINAMIDE [Suspect]
     Active Substance: PYRAZINAMIDE
     Indication: Meningitis tuberculous
     Dosage: UNK
     Route: 065
     Dates: start: 201508
  3. ETHAMBUTOL [Suspect]
     Active Substance: ETHAMBUTOL HYDROCHLORIDE
     Indication: Meningitis tuberculous
     Dosage: UNK
     Route: 065
     Dates: start: 201508
  4. LEVOFLOXACIN [Suspect]
     Active Substance: LEVOFLOXACIN
     Indication: Meningitis tuberculous
     Dosage: UNK
     Route: 065
     Dates: start: 201508
  5. ETHIONAMIDE [Suspect]
     Active Substance: ETHIONAMIDE
     Indication: Meningitis tuberculous
     Dosage: UNK
     Route: 065
     Dates: start: 2016
  6. PREDNISOLONE [Suspect]
     Active Substance: PREDNISOLONE
     Indication: Meningitis tuberculous
     Dosage: 10 MILLIGRAM, QD, FOR ONE MONTH
     Route: 065
     Dates: start: 2015
  7. PREDNISOLONE [Suspect]
     Active Substance: PREDNISOLONE
     Dosage: 30 MILLIGRAM, IN TAPERING DOSE FOR NEXT 6 MONTHS
     Route: 065
     Dates: start: 2016
  8. STREPTOMYCIN [Suspect]
     Active Substance: STREPTOMYCIN SULFATE
     Indication: Meningitis tuberculous
     Dosage: UNK, FOR ONE MONTH
     Route: 065
     Dates: start: 2015
  9. ISONIAZID [Suspect]
     Active Substance: ISONIAZID
     Indication: Meningitis tuberculous
     Dosage: UNK
     Route: 065
     Dates: start: 201508

REACTIONS (5)
  - Paradoxical drug reaction [Not Recovered/Not Resolved]
  - Blindness [Not Recovered/Not Resolved]
  - Tuberculoma of central nervous system [Not Recovered/Not Resolved]
  - Visual pathway disorder [Not Recovered/Not Resolved]
  - Hemiparesis [Unknown]
